FAERS Safety Report 5091399-4 (Version None)
Quarter: 2006Q3

REPORT INFORMATION
  Report Type: 
  Country: None (occurrence: None)
  Receive Date: 20060727
  Receipt Date: 20060412
  Transmission Date: 20061208
  Serious: Yes (Other)
  Sender: FDA-Public Use
  Company Number: 2006050821

PATIENT
  Sex: Male

DRUGS (3)
  1. LYRICA [Suspect]
     Indication: CARPAL TUNNEL SYNDROME
     Dosage: 100 MG (50 MG,1 IN 1 D)
     Dates: start: 20060401
  2. LYRICA [Suspect]
     Indication: EPICONDYLITIS
     Dosage: 100 MG (50 MG,1 IN 1 D)
     Dates: start: 20060401
  3. ALL OTHER THERAPEUTIC PRODUCTS (ALL OTHER THERAPEUTIC PRODUCTS) [Concomitant]

REACTIONS (1)
  - EYELID DISORDER [None]
